FAERS Safety Report 11948226 (Version 1)
Quarter: 2016Q1

REPORT INFORMATION
  Report Type: Spontaneous
  Country: US (occurrence: US)
  Receive Date: 20160125
  Receipt Date: 20160125
  Transmission Date: 20160526
  Serious: No
  Sender: FDA-Public Use
  Company Number: US-TARO-2015TAR01006

PATIENT
  Age: 57 Year
  Sex: Female
  Weight: 54.42 kg

DRUGS (1)
  1. TOPICORT [Suspect]
     Active Substance: DESOXIMETASONE
     Indication: ECZEMA
     Dosage: UNK UNK, 1X/DAY
     Route: 061
     Dates: start: 201510, end: 20151019

REACTIONS (4)
  - Blood pressure increased [Recovered/Resolved]
  - Off label use [Recovered/Resolved]
  - Head discomfort [Recovered/Resolved]
  - Nasopharyngitis [Recovered/Resolved]

NARRATIVE: CASE EVENT DATE: 201510
